FAERS Safety Report 12009756 (Version 1)
Quarter: 2016Q1

REPORT INFORMATION
  Report Type: Spontaneous
  Country: DE (occurrence: DE)
  Receive Date: 20160205
  Receipt Date: 20160205
  Transmission Date: 20160526
  Serious: Yes (Hospitalization, Congenital Anomaly, Other)
  Sender: FDA-Public Use
  Company Number: DE-SUN PHARMACEUTICAL INDUSTRIES LTD-2016RR-110704

PATIENT

DRUGS (8)
  1. EUTHYROX 50 [Concomitant]
     Indication: HYPOTHYROIDISM
     Dosage: 50 ?G, QD, DURING GW 0-32.5
     Route: 064
     Dates: start: 20141023, end: 20150609
  2. VENLAFAXINE [Suspect]
     Active Substance: VENLAFAXINE HYDROCHLORIDE
     Indication: DEPRESSION
     Dosage: 75 MG, QD, DURING GW 0-32.5
     Route: 064
     Dates: start: 20141023, end: 20150609
  3. CLEXANE 20 [Concomitant]
     Indication: COAGULOPATHY
     Dosage: 20 MG, DAILY
     Route: 064
  4. ASS 100 [Concomitant]
     Active Substance: ASPIRIN
     Indication: COAGULOPATHY
     Dosage: 100 MG, QD, DURING GW 5-12
     Route: 064
  5. PREDNISOLONE. [Concomitant]
     Active Substance: PREDNISOLONE
     Indication: COAGULOPATHY
     Dosage: 10 MG, QD, DURING GW 5-12
     Route: 064
  6. TRENTAL [Suspect]
     Active Substance: PENTOXIFYLLINE
     Indication: COAGULOPATHY
     Dosage: 400 MG, BID, DURING GW 5-12
     Route: 064
  7. DIAZEPAM. [Concomitant]
     Active Substance: DIAZEPAM
     Indication: DEPRESSION
     Dosage: TRIMESTER 2ND AND 3RD
     Route: 064
  8. FEMIBION SCHWANGERSCHAFT 1 [Concomitant]
     Indication: PROPHYLAXIS OF NEURAL TUBE DEFECT
     Dosage: 0.8 MG, QD, DURING GW 0-32.5
     Route: 064
     Dates: start: 20141023, end: 20150609

REACTIONS (4)
  - Bradycardia neonatal [Recovered/Resolved]
  - Infantile apnoea [Recovered/Resolved]
  - Atrial septal defect [Not Recovered/Not Resolved]
  - Respiratory disorder neonatal [Recovered/Resolved]

NARRATIVE: CASE EVENT DATE: 20150609
